FAERS Safety Report 19894217 (Version 1)
Quarter: 2021Q3

REPORT INFORMATION
  Report Type: Report from Study
  Country: US (occurrence: US)
  Receive Date: 20210928
  Receipt Date: 20210928
  Transmission Date: 20211014
  Serious: Yes (Hospitalization)
  Sender: FDA-Public Use
  Company Number: US-TAKEDA-2021TUS058165

PATIENT
  Age: 7 Year
  Sex: Male

DRUGS (4)
  1. TEDUGLUTIDE [Suspect]
     Active Substance: TEDUGLUTIDE
     Indication: SHORT-BOWEL SYNDROME
     Dosage: 0.95 MILLIGRAM, QD
     Route: 058
     Dates: start: 20200209
  2. TEDUGLUTIDE [Suspect]
     Active Substance: TEDUGLUTIDE
     Indication: SHORT-BOWEL SYNDROME
     Dosage: 0.95 MILLIGRAM, QD
     Route: 058
     Dates: start: 20200209
  3. TEDUGLUTIDE [Suspect]
     Active Substance: TEDUGLUTIDE
     Indication: SHORT-BOWEL SYNDROME
     Dosage: 0.95 MILLIGRAM, QD
     Route: 058
     Dates: start: 20200209
  4. TEDUGLUTIDE [Suspect]
     Active Substance: TEDUGLUTIDE
     Indication: SHORT-BOWEL SYNDROME
     Dosage: 0.95 MILLIGRAM, QD
     Route: 058
     Dates: start: 20200209

REACTIONS (3)
  - Weight decreased [Unknown]
  - Complication associated with device [Unknown]
  - COVID-19 [Unknown]

NARRATIVE: CASE EVENT DATE: 20210820
